FAERS Safety Report 11328543 (Version 1)
Quarter: 2015Q3

REPORT INFORMATION
  Report Type: Spontaneous
  Country: TR (occurrence: TR)
  Receive Date: 20150731
  Receipt Date: 20150731
  Transmission Date: 20151125
  Serious: Yes (Life-Threatening, Hospitalization)
  Sender: FDA-Public Use
  Company Number: PHHY2015TR089577

PATIENT
  Age: 43 Year
  Sex: Male

DRUGS (1)
  1. AMLODIPINE [Suspect]
     Active Substance: AMLODIPINE BESYLATE
     Indication: PRODUCT USED FOR UNKNOWN INDICATION
     Dosage: 100 MG, UNK
     Route: 065

REACTIONS (9)
  - Hypoxia [Not Recovered/Not Resolved]
  - Oliguria [Not Recovered/Not Resolved]
  - Tachycardia [Unknown]
  - Intentional overdose [Unknown]
  - Shock [Not Recovered/Not Resolved]
  - Acute kidney injury [Unknown]
  - Pulmonary oedema [Unknown]
  - Suicide attempt [Unknown]
  - Hypotension [Not Recovered/Not Resolved]
